FAERS Safety Report 15362218 (Version 1)
Quarter: 2018Q3

REPORT INFORMATION
  Report Type: Spontaneous
  Country: US (occurrence: US)
  Receive Date: 20180831
  Receipt Date: 20180831
  Transmission Date: 20181010
  Serious: Yes (Disabling)
  Sender: FDA-Public Use
  Company Number: None

PATIENT
  Age: 87 Year
  Sex: Male
  Weight: 90.72 kg

DRUGS (21)
  1. ISOSORBIDE MONONITRATE. [Suspect]
     Active Substance: ISOSORBIDE MONONITRATE
     Indication: ANGIOPATHY
     Dosage: ?          QUANTITY:1 DF DOSAGE FORM;?
     Route: 048
     Dates: start: 20180814, end: 20180816
  2. ATORVASTATIN [Concomitant]
     Active Substance: ATORVASTATIN
  3. MUCINEX [Concomitant]
     Active Substance: GUAIFENESIN
  4. LOW DOSE ASPIRIN [Concomitant]
     Active Substance: ASPIRIN
  5. LORAZEPAM. [Concomitant]
     Active Substance: LORAZEPAM
  6. NITRO PILLS [Concomitant]
     Active Substance: NITROGLYCERIN
  7. SYNTHROID [Concomitant]
     Active Substance: LEVOTHYROXINE SODIUM
  8. BIOTIN [Concomitant]
     Active Substance: BIOTIN
  9. FINASTERIDE. [Concomitant]
     Active Substance: FINASTERIDE
  10. FUROSEMIDE. [Concomitant]
     Active Substance: FUROSEMIDE
  11. VITS/MINS [Concomitant]
  12. MAG OXIDE [Concomitant]
     Active Substance: MAGNESIUM OXIDE
  13. METOPROLOL. [Concomitant]
     Active Substance: METOPROLOL
  14. POTASSIUM [Concomitant]
     Active Substance: POTASSIUM
  15. VITAMIN B12 [Concomitant]
     Active Substance: CYANOCOBALAMIN
  16. FIBER GUMMIES [Concomitant]
  17. ALLOPURINOL. [Concomitant]
     Active Substance: ALLOPURINOL
  18. ZOLPIDEM [Concomitant]
     Active Substance: ZOLPIDEM\ZOLPIDEM TARTRATE
  19. ALFUZOSIN HCL [Concomitant]
     Active Substance: ALFUZOSIN HYDROCHLORIDE
  20. PERCOCET [Concomitant]
     Active Substance: ACETAMINOPHEN\OXYCODONE HYDROCHLORIDE
  21. FISH OIL [Concomitant]
     Active Substance: FISH OIL

REACTIONS (1)
  - Headache [None]

NARRATIVE: CASE EVENT DATE: 20180814
